FAERS Safety Report 6339461-X (Version None)
Quarter: 2009Q3

REPORT INFORMATION
  Report Type: 
  Country: None (occurrence: None)
  Receive Date: 20090903
  Receipt Date: 20090826
  Transmission Date: 20100115
  Serious: Yes (Hospitalization)
  Sender: FDA-Public Use
  Company Number: CH-BAXTER-2009BH013430

PATIENT
  Age: 63 Year
  Sex: Female

DRUGS (20)
  1. ENDOXAN BAXTER [Suspect]
     Indication: SYSTEMIC LUPUS ERYTHEMATOSUS
     Route: 040
     Dates: start: 20090323, end: 20090323
  2. ENDOXAN BAXTER [Suspect]
     Route: 042
     Dates: start: 20090420, end: 20090420
  3. ENDOXAN BAXTER [Suspect]
     Route: 042
     Dates: start: 20090505, end: 20090505
  4. ENDOXAN BAXTER [Suspect]
     Route: 042
     Dates: start: 20090519, end: 20090519
  5. ENDOXAN BAXTER [Suspect]
     Route: 042
     Dates: start: 20090602, end: 20090609
  6. SOLU-MEDROL [Suspect]
     Indication: SYSTEMIC LUPUS ERYTHEMATOSUS
     Route: 040
     Dates: start: 20090321, end: 20090323
  7. PREDNISONE [Suspect]
     Indication: SYSTEMIC LUPUS ERYTHEMATOSUS
     Route: 048
     Dates: start: 20090504, end: 20090517
  8. PREDNISONE [Suspect]
     Route: 048
     Dates: start: 20090323, end: 20090420
  9. PREDNISONE [Suspect]
     Route: 048
     Dates: start: 20090518, end: 20090524
  10. PREDNISONE [Suspect]
     Route: 048
     Dates: start: 20090420, end: 20090503
  11. PREDNISONE [Suspect]
     Route: 048
     Dates: start: 20090525, end: 20090531
  12. PREDNISONE [Suspect]
     Route: 048
     Dates: start: 20090601, end: 20090610
  13. PREDNISONE [Suspect]
     Route: 048
     Dates: start: 20090611, end: 20090101
  14. PREDNISONE [Suspect]
     Route: 048
     Dates: start: 20090101
  15. APROVEL [Concomitant]
     Indication: DRUG USE FOR UNKNOWN INDICATION
     Route: 048
  16. ACTONEL [Concomitant]
     Indication: DRUG USE FOR UNKNOWN INDICATION
     Route: 048
  17. LIVIAL [Concomitant]
     Indication: DRUG USE FOR UNKNOWN INDICATION
     Route: 048
  18. CALCIMAGON-D3 [Concomitant]
     Indication: DRUG USE FOR UNKNOWN INDICATION
     Route: 048
  19. CITALOPRAM HYDROBROMIDE [Concomitant]
     Indication: DEPRESSION
     Route: 048
     Dates: start: 19990101, end: 20060101
  20. CITALOPRAM HYDROBROMIDE [Concomitant]
     Route: 048
     Dates: start: 20060101

REACTIONS (2)
  - DEPRESSION [None]
  - PSYCHOTIC DISORDER [None]
